FAERS Safety Report 19154917 (Version 1)
Quarter: 2021Q2

REPORT INFORMATION
  Report Type: Spontaneous
  Country: IN (occurrence: IN)
  Receive Date: 20210419
  Receipt Date: 20210419
  Transmission Date: 20210717
  Serious: Yes (Death)
  Sender: FDA-Public Use
  Company Number: IN-PFIZER INC-2019417672

PATIENT
  Age: 79 Year
  Sex: Female

DRUGS (5)
  1. XGEVA [Concomitant]
     Active Substance: DENOSUMAB
     Dosage: UNK
     Route: 058
  2. RABLET [Concomitant]
     Active Substance: RABEPRAZOLE
     Dosage: 1 DF, 2X/DAY
  3. PALBACE [Suspect]
     Active Substance: PALBOCICLIB
     Indication: BREAST CANCER METASTATIC
     Dosage: 125 MG, 1X/DAY
     Route: 048
     Dates: start: 20181020, end: 20200418
  4. LETROZOLE. [Concomitant]
     Active Substance: LETROZOLE
     Indication: BREAST CANCER METASTATIC
     Dosage: UNK
  5. CALMAX [ASCORBIC ACID;CALCIUM GLUCONATE;CITRIC ACID;MAGNESIUM CARBONAT [Concomitant]
     Dosage: 100

REACTIONS (1)
  - Death [Fatal]
